FAERS Safety Report 20624148 (Version 1)
Quarter: 2022Q1

REPORT INFORMATION
  Report Type: Spontaneous
  Country: US (occurrence: US)
  Receive Date: 20220322
  Receipt Date: 20220322
  Transmission Date: 20220423
  Serious: No
  Sender: FDA-Public Use
  Company Number: US-SA-SAC20220315000420

PATIENT
  Sex: Female

DRUGS (5)
  1. AUBAGIO [Suspect]
     Active Substance: TERIFLUNOMIDE
     Indication: Multiple sclerosis
     Dosage: 14 MG, QD
     Route: 048
     Dates: start: 20211022
  2. VUMERITY [Concomitant]
     Active Substance: DIROXIMEL FUMARATE
  3. VITAMINS NOS [Concomitant]
     Active Substance: VITAMINS
  4. METHOTREXATE [Concomitant]
     Active Substance: METHOTREXATE
  5. VITAMIN C [Concomitant]
     Active Substance: ASCORBIC ACID

REACTIONS (1)
  - Hepatic enzyme increased [Recovering/Resolving]
